FAERS Safety Report 9397379 (Version 1)
Quarter: 2013Q3

REPORT INFORMATION
  Report Type: Report from Study
  Country: FR (occurrence: FR)
  Receive Date: 20130712
  Receipt Date: 20130712
  Transmission Date: 20140515
  Serious: Yes (Death)
  Sender: FDA-Public Use
  Company Number: FR-CELGENEUS-056-21880-12043065

PATIENT
  Age: 66 Year
  Sex: Female

DRUGS (11)
  1. REVLIMID [Suspect]
     Indication: ACUTE MYELOID LEUKAEMIA
     Dosage: 25 MILLIGRAM
     Route: 048
     Dates: start: 20120328, end: 20120409
  2. DAUNORUBICINE [Suspect]
     Indication: ACUTE MYELOID LEUKAEMIA
     Dosage: 60 MILLIGRAM/SQ. METER
     Route: 041
     Dates: start: 20120328, end: 20120330
  3. ARACYTINE [Suspect]
     Indication: ACUTE MYELOID LEUKAEMIA
     Dosage: 200 MILLIGRAM/SQ. METER
     Route: 041
     Dates: start: 20120328, end: 20120403
  4. DAFLON [Concomitant]
     Indication: PRODUCT USED FOR UNKNOWN INDICATION
     Route: 065
  5. AUGMENTIN [Concomitant]
     Indication: HYPERTHERMIA
     Route: 065
     Dates: start: 201203
  6. ROCEPHINE [Concomitant]
     Indication: HYPERTHERMIA
     Route: 065
     Dates: start: 201203
  7. FLAGYL [Concomitant]
     Indication: HYPERTHERMIA
     Route: 065
     Dates: start: 201203
  8. TAVANIC [Concomitant]
     Indication: HYPERTHERMIA
     Route: 065
     Dates: start: 201203
  9. TAZOCILLINE [Concomitant]
     Indication: HYPERTHERMIA
     Route: 065
     Dates: start: 201204
  10. VANCOMYCIN [Concomitant]
     Indication: HYPERTHERMIA
     Route: 065
     Dates: start: 201204
  11. CANCIDAS [Concomitant]
     Indication: HYPERTHERMIA
     Route: 065
     Dates: start: 201204

REACTIONS (3)
  - Multi-organ failure [Fatal]
  - Pulmonary oedema [Fatal]
  - Sepsis [Fatal]
